FAERS Safety Report 7012768-9 (Version None)
Quarter: 2010Q3

REPORT INFORMATION
  Report Type: 
  Country: None (occurrence: None)
  Receive Date: 20100922
  Receipt Date: 20100916
  Transmission Date: 20110219
  Serious: Yes (Other)
  Sender: FDA-Public Use
  Company Number: 2009SP038965

PATIENT
  Age: 20 Year
  Sex: Female
  Weight: 43.0917 kg

DRUGS (8)
  1. NUVARING [Suspect]
     Indication: CONTRACEPTION
     Dates: start: 20050401, end: 20070101
  2. NUVARING [Suspect]
     Indication: MENSTRUATION IRREGULAR
     Dates: start: 20050401, end: 20070101
  3. NUVARING [Suspect]
     Indication: CONTRACEPTION
     Dates: start: 20080101, end: 20090726
  4. NUVARING [Suspect]
     Indication: MENSTRUATION IRREGULAR
     Dates: start: 20080101, end: 20090726
  5. LORTAB [Suspect]
     Indication: HEADACHE
  6. IBUPROFEN [Concomitant]
  7. EXCEDRIN (MIGRAINE) [Concomitant]
  8. ALBUTEROL [Concomitant]

REACTIONS (40)
  - ABDOMINAL PAIN UPPER [None]
  - ACTIVITIES OF DAILY LIVING IMPAIRED [None]
  - AMENORRHOEA [None]
  - ANXIETY [None]
  - ASTHENIA [None]
  - CANDIDIASIS [None]
  - CHEST PAIN [None]
  - COUGH [None]
  - CYSTITIS BACTERIAL [None]
  - DECREASED INTEREST [None]
  - DEEP VEIN THROMBOSIS [None]
  - DEPRESSION [None]
  - DRUG EXPOSURE BEFORE PREGNANCY [None]
  - DYSPNOEA [None]
  - ESCHERICHIA URINARY TRACT INFECTION [None]
  - GASTRITIS [None]
  - HEADACHE [None]
  - HYPERCOAGULATION [None]
  - HYPOPHAGIA [None]
  - INTERNATIONAL NORMALISED RATIO INCREASED [None]
  - IRRITABILITY [None]
  - LOWER RESPIRATORY TRACT INFECTION [None]
  - MIGRAINE [None]
  - MULTIPLE INJURIES [None]
  - NAUSEA [None]
  - OVARIAN CYST [None]
  - OVARIAN CYST RUPTURED [None]
  - PANIC ATTACK [None]
  - PREGNANCY [None]
  - PROTEIN C DEFICIENCY [None]
  - PULMONARY EMBOLISM [None]
  - PYELONEPHRITIS [None]
  - RECTAL HAEMORRHAGE [None]
  - RHINITIS ALLERGIC [None]
  - SUICIDAL IDEATION [None]
  - THIRST [None]
  - THROMBOSIS [None]
  - URINARY TRACT INFECTION BACTERIAL [None]
  - VAGINAL INFECTION [None]
  - VENOUS THROMBOSIS [None]
